FAERS Safety Report 16332859 (Version 1)
Quarter: 2019Q2

REPORT INFORMATION
  Report Type: Report from Study
  Country: GB (occurrence: GB)
  Receive Date: 20190520
  Receipt Date: 20190520
  Transmission Date: 20190711
  Serious: Yes (Other)
  Sender: FDA-Public Use
  Company Number: GB-SAMSUNG BIOEPIS-SB-2019-11947

PATIENT
  Sex: Female

DRUGS (1)
  1. BENEPALI [Suspect]
     Active Substance: ETANERCEPT
     Indication: PRODUCT USED FOR UNKNOWN INDICATION
     Route: 058

REACTIONS (7)
  - Loss of consciousness [Recovered/Resolved]
  - Movement disorder [Recovered/Resolved]
  - Muscle twitching [Unknown]
  - Hypoaesthesia [Unknown]
  - Fear [Unknown]
  - Confusional state [Unknown]
  - Paraesthesia [Unknown]
